FAERS Safety Report 8007945-4 (Version None)
Quarter: 2011Q4

REPORT INFORMATION
  Report Type: 
  Country: None (occurrence: None)
  Receive Date: 20111227
  Receipt Date: 20111213
  Transmission Date: 20120403
  Serious: No
  Sender: FDA-Public Use
  Company Number: US-ELI_LILLY_AND_COMPANY-US201109006420

PATIENT
  Sex: Female

DRUGS (6)
  1. FORTEO [Suspect]
     Dosage: UNK, QD
  2. FORTEO [Suspect]
     Indication: OSTEOPOROSIS
     Dosage: UNK UNK, QD
     Dates: start: 20110301
  3. CALCIUM ACETATE [Concomitant]
     Dosage: UNK
     Dates: start: 20110301
  4. LEVOTHROID [Concomitant]
     Dosage: UNK
  5. VITAMIN D [Concomitant]
  6. SYNTHROID [Concomitant]

REACTIONS (1)
  - DRUG DOSE OMISSION [None]
